FAERS Safety Report 5210136-3 (Version None)
Quarter: 2006Q4

REPORT INFORMATION
  Report Type: 
  Country: None (occurrence: None)
  Receive Date: 20061103
  Receipt Date: 20060822
  Transmission Date: 20070319
  Serious: No
  Sender: FDA-Public Use
  Company Number: FACT0600334

PATIENT
  Age: 62 Year
  Sex: Male
  Weight: 83.9 kg

DRUGS (5)
  1. FACTIVE [Suspect]
     Indication: RESPIRATORY TRACT INFECTION BACTERIAL
     Dosage: 320 MG, QD, ORAL
     Route: 048
     Dates: start: 20060818, end: 20060825
  2. COZAAR [Concomitant]
  3. PINDOLOL [Concomitant]
  4. DOXAZOSIN (DOXAZOSIN) [Concomitant]
  5. VICODIN [Concomitant]

REACTIONS (8)
  - ABDOMINAL PAIN UPPER [None]
  - DRY EYE [None]
  - DYSPNOEA [None]
  - HAEMATOCHEZIA [None]
  - RASH GENERALISED [None]
  - SWELLING FACE [None]
  - URTICARIA [None]
  - VISION BLURRED [None]
